FAERS Safety Report 5122740-1 (Version None)
Quarter: 2006Q4

REPORT INFORMATION
  Report Type: 
  Country: None (occurrence: None)
  Receive Date: 20061005
  Receipt Date: 20060914
  Transmission Date: 20070319
  Serious: Yes (Death)
  Sender: FDA-Public Use
  Company Number: US200609003139

PATIENT
  Age: 25 Year
  Sex: Female

DRUGS (2)
  1. CYMBALTA [Suspect]
     Dosage: 30 MG, DAILY (1/D); SEE IMAGE
     Dates: start: 20060401
  2. LEXAPRO [Concomitant]

REACTIONS (1)
  - OVERDOSE [None]
